FAERS Safety Report 8269951-4 (Version None)
Quarter: 2012Q2

REPORT INFORMATION
  Report Type: 
  Country: None (occurrence: None)
  Receive Date: 20120410
  Receipt Date: 20120404
  Transmission Date: 20120825
  Serious: No
  Sender: FDA-Public Use
  Company Number: US-PFIZER INC-2012086281

PATIENT
  Sex: Female
  Weight: 12.245 kg

DRUGS (4)
  1. CHILDREN'S ADVIL [Suspect]
     Indication: PYREXIA
     Dosage: 1 TEASPOON, 3XDAY
     Route: 048
     Dates: start: 20120329, end: 20120402
  2. TYLENOL (CAPLET) [Suspect]
     Indication: PYREXIA
     Dosage: 1 TEASPOON, DAILY
     Route: 048
     Dates: start: 20120331, end: 20120402
  3. CHILDREN'S ADVIL [Suspect]
     Indication: PAIN
  4. TYLENOL (CAPLET) [Suspect]
     Indication: PAIN

REACTIONS (1)
  - URTICARIA [None]
